FAERS Safety Report 4600699-0 (Version None)
Quarter: 2005Q1

REPORT INFORMATION
  Report Type: 
  Country: None (occurrence: None)
  Receive Date: 20050304
  Receipt Date: 20050222
  Transmission Date: 20050727
  Serious: Yes (Hospitalization)
  Sender: FDA-Public Use
  Company Number: HQWYE472022FEB05

PATIENT
  Age: 79 Year
  Sex: Female

DRUGS (2)
  1. ETODOLAC [Suspect]
     Indication: BACK PAIN
     Dosage: 400 MG 1 X PER 1 DAY
     Route: 048
     Dates: start: 20040818, end: 20040825
  2. ELCATONIN (ELCATONIN) [Concomitant]

REACTIONS (3)
  - BACK PAIN [None]
  - DIFFICULTY IN WALKING [None]
  - STEVENS-JOHNSON SYNDROME [None]
